FAERS Safety Report 22323885 (Version 1)
Quarter: 2023Q2

REPORT INFORMATION
  Report Type: Spontaneous
  Country: US (occurrence: US)
  Receive Date: 20230516
  Receipt Date: 20230516
  Transmission Date: 20230722
  Serious: Yes (Death, Other)
  Sender: FDA-Public Use
  Company Number: US-AMGEN-USASP2023082263

PATIENT
  Age: 64 Year
  Sex: Male

DRUGS (10)
  1. BLINCYTO [Suspect]
     Active Substance: BLINATUMOMAB
     Indication: B-cell type acute leukaemia
     Dosage: UNK
     Route: 065
  2. RITUXIMAB [Suspect]
     Active Substance: RITUXIMAB
     Indication: B-cell type acute leukaemia
     Dosage: UNK
     Route: 065
  3. CYCLOPHOSPHAMIDE [Concomitant]
     Active Substance: CYCLOPHOSPHAMIDE
  4. VINCRISTINE [Concomitant]
     Active Substance: VINCRISTINE
  5. DOXORUBICIN [Concomitant]
     Active Substance: DOXORUBICIN
  6. DEXAMETHASONE [Concomitant]
     Active Substance: DEXAMETHASONE
  7. METHOTREXATE [Concomitant]
     Active Substance: METHOTREXATE
     Route: 029
  8. CYTARABINE [Concomitant]
     Active Substance: CYTARABINE
     Route: 029
  9. MARQIBO [Concomitant]
     Active Substance: VINCRISTINE SULFATE
  10. MERCAPTOPURINE [Concomitant]
     Active Substance: MERCAPTOPURINE

REACTIONS (2)
  - Death [Fatal]
  - Off label use [Unknown]
